FAERS Safety Report 14209652 (Version 1)
Quarter: 2017Q4

REPORT INFORMATION
  Report Type: Spontaneous
  Country: US (occurrence: US)
  Receive Date: 20171121
  Receipt Date: 20171121
  Transmission Date: 20180321
  Serious: No
  Sender: FDA-Public Use
  Company Number: US-PFIZER INC-2017497574

PATIENT
  Age: 45 Year
  Sex: Male
  Weight: 97.52 kg

DRUGS (2)
  1. EUCRISA [Suspect]
     Active Substance: CRISABOROLE
     Indication: DRY SKIN
     Dosage: APPLY THIN LAYER ONCE DAILY BEFORE BEDTIME
     Dates: start: 20171114, end: 20171114
  2. ELIDEL [Concomitant]
     Active Substance: PIMECROLIMUS
     Indication: DRY SKIN
     Dosage: APPLY A THIN LAYER TWICE A DAY
     Dates: start: 20171114

REACTIONS (1)
  - Application site pain [Recovering/Resolving]

NARRATIVE: CASE EVENT DATE: 20171114
